FAERS Safety Report 18280099 (Version 1)
Quarter: 2020Q3

REPORT INFORMATION
  Report Type: Spontaneous
  Country: US (occurrence: US)
  Receive Date: 20200918
  Receipt Date: 20200918
  Transmission Date: 20201103
  Serious: Yes (Disabling, Other)
  Sender: FDA-Public Use
  Company Number: US-ALVOGEN-2020-ALVOGEN-114233

PATIENT
  Sex: Male

DRUGS (1)
  1. HYDROCODONE BITARTRATE. [Suspect]
     Active Substance: HYDROCODONE BITARTRATE
     Indication: PROCEDURAL PAIN
     Dates: start: 199111, end: 199706

REACTIONS (7)
  - Drug dependence [Unknown]
  - Impaired work ability [Unknown]
  - Memory impairment [Unknown]
  - Tremor [Unknown]
  - Hypoaesthesia [Unknown]
  - Motor dysfunction [Unknown]
  - Drug ineffective [Unknown]
